FAERS Safety Report 7569146-3 (Version None)
Quarter: 2011Q2

REPORT INFORMATION
  Report Type: 
  Country: None (occurrence: None)
  Receive Date: 20110623
  Receipt Date: 20110610
  Transmission Date: 20111010
  Serious: Yes (Other)
  Sender: FDA-Public Use
  Company Number: PHHY2011BR51859

PATIENT
  Sex: Female
  Weight: 62 kg

DRUGS (10)
  1. SEROQUEL [Concomitant]
     Dosage: 125 MG, UNK
  2. CATAFLAM [Suspect]
     Dosage: UNK UKN, UNK
  3. GEMFIBROZIL [Concomitant]
     Dosage: 900 MG, UNK
  4. CLONAZEPAM [Concomitant]
     Dosage: 0.5 MG, UNK
  5. TEGRETOL [Suspect]
     Dosage: UNK UKN, UNK
  6. MEMANTINE HYDROCHLORIDE [Concomitant]
     Dosage: 20 MG, UNK
  7. PANTOPRAZOLE [Concomitant]
     Dosage: 40 MG, UNK
  8. CITALOPRAM HYDROBROMIDE [Concomitant]
     Dosage: 20 MG, UNK
  9. LIPITOR [Concomitant]
     Dosage: 40 MG, UNK
  10. LEVOTHYROXINE SODIUM [Concomitant]
     Dosage: 100 UG, UNK

REACTIONS (2)
  - URINARY TRACT INFECTION [None]
  - HYPERSENSITIVITY [None]
